FAERS Safety Report 5936844-4 (Version None)
Quarter: 2008Q4

REPORT INFORMATION
  Report Type: 
  Country: None (occurrence: None)
  Receive Date: 20081029
  Receipt Date: 20081015
  Transmission Date: 20090506
  Serious: Yes (Hospitalization)
  Sender: FDA-Public Use
  Company Number: 2008S1000374

PATIENT
  Age: 48 Year
  Sex: Female

DRUGS (1)
  1. CUBICIN [Suspect]
     Indication: WOUND INFECTION
     Dosage: 800 MG;Q24H;IV
     Route: 042

REACTIONS (3)
  - PNEUMONITIS [None]
  - PULMONARY OEDEMA [None]
  - RESPIRATORY FAILURE [None]
